FAERS Safety Report 25163524 (Version 2)
Quarter: 2025Q2

REPORT INFORMATION
  Report Type: Report from Study
  Country: US (occurrence: US)
  Receive Date: 20250405
  Receipt Date: 20250409
  Transmission Date: 20250716
  Serious: Yes (Hospitalization, Other)
  Sender: ABBVIE
  Company Number: US-ABBVIE-6206543

PATIENT
  Age: 45 Year
  Sex: Female

DRUGS (1)
  1. VENCLEXTA [Suspect]
     Active Substance: VENETOCLAX
     Indication: Acute myeloid leukaemia
     Dosage: LAST ADMIN DATE: 2025?DOSE - 100MG DAILY FOR 14 DAYS ON, 14 DAYS OFF
     Route: 048
     Dates: start: 20250131

REACTIONS (3)
  - Acute myeloid leukaemia [Unknown]
  - Eye haemorrhage [Unknown]
  - Blindness [Unknown]

NARRATIVE: CASE EVENT DATE: 20250101
